FAERS Safety Report 25340683 (Version 2)
Quarter: 2025Q2

REPORT INFORMATION
  Report Type: Spontaneous
  Country: FR (occurrence: FR)
  Receive Date: 20250521
  Receipt Date: 20250624
  Transmission Date: 20250716
  Serious: Yes (Hospitalization, Other)
  Sender: CHEPLAPHARM
  Company Number: None

PATIENT
  Age: 75 Year
  Sex: Female
  Weight: 66 kg

DRUGS (12)
  1. OLANZAPINE [Suspect]
     Active Substance: OLANZAPINE
     Indication: Bipolar I disorder
     Dosage: 20 MG IN THE EVENING?DAILY DOSE: 20 MILLIGRAM
     Route: 048
     Dates: start: 20250217, end: 20250409
  2. TERALITHE [Suspect]
     Active Substance: LITHIUM CARBONATE
     Indication: Bipolar I disorder
     Dosage: 800 MG IN THE EVENING?DAILY DOSE: 800 MILLIGRAM
     Route: 048
     Dates: start: 20250217, end: 20250409
  3. LAMOTRIGINE [Suspect]
     Active Substance: LAMOTRIGINE
     Indication: Bipolar I disorder
     Route: 048
     Dates: start: 20250224, end: 20250409
  4. MIRTAZAPINE [Suspect]
     Active Substance: MIRTAZAPINE
     Dates: start: 20250202, end: 20250205
  5. RISPERDAL [Suspect]
     Active Substance: RISPERIDONE
     Dates: start: 20250202, end: 20250205
  6. POLYETHYLENE GLYCOLS [Suspect]
     Active Substance: POLYETHYLENE GLYCOLS
  7. GABAPENTIN [Suspect]
     Active Substance: GABAPENTIN
  8. DESMOPRESSIN [Suspect]
     Active Substance: DESMOPRESSIN
  9. TIAPRIDE HYDROCHLORIDE [Suspect]
     Active Substance: TIAPRIDE HYDROCHLORIDE
  10. ACETAMINOPHEN [Suspect]
     Active Substance: ACETAMINOPHEN
  11. LORAZEPAM [Suspect]
     Active Substance: LORAZEPAM
  12. MELATONIN [Suspect]
     Active Substance: MELATONIN

REACTIONS (3)
  - Drug reaction with eosinophilia and systemic symptoms [Recovering/Resolving]
  - Cholestasis [Unknown]
  - Renal impairment [Unknown]

NARRATIVE: CASE EVENT DATE: 20250325
